FAERS Safety Report 10646428 (Version 2)
Quarter: 2015Q1

REPORT INFORMATION
  Report Type: Report from Study
  Country: JP (occurrence: JP)
  Receive Date: 20141211
  Receipt Date: 20150226
  Transmission Date: 20150720
  Serious: Yes (Hospitalization)
  Sender: FDA-Public Use
  Company Number: JP-PFIZER INC-2014334312

PATIENT
  Age: 58 Year
  Sex: Male
  Weight: 85.9 kg

DRUGS (13)
  1. XALKORI [Suspect]
     Active Substance: CRIZOTINIB
     Indication: NON-SMALL CELL LUNG CANCER
     Dosage: 250 MG, 2X/DAY
     Route: 048
     Dates: start: 20120801, end: 20120912
  2. ARTANE [Concomitant]
     Active Substance: TRIHEXYPHENIDYL HYDROCHLORIDE
     Dosage: 2 MG, 2X/DAY
     Route: 048
  3. NOVORAPID [Concomitant]
     Active Substance: INSULIN ASPART
     Dosage: UNK
     Route: 042
  4. PARIET [Concomitant]
     Active Substance: RABEPRAZOLE SODIUM
     Dosage: 10 MG, 1X/DAY
     Route: 048
     Dates: start: 20120726
  5. ROHYPNOL ROCHE [Concomitant]
     Dosage: 2 MG, 1X/DAY
     Route: 048
  6. LEVOMEPROMAZINE [Concomitant]
     Active Substance: LEVOMEPROMAZINE
     Dosage: 0.14 (UNITS UNKNOWN), 1X/DAY
     Route: 048
  7. SELBEX [Concomitant]
     Active Substance: TEPRENONE
     Dosage: 150 MG, 3X/DAY
     Route: 048
     Dates: start: 20120801
  8. BAKTAR [Concomitant]
     Active Substance: SULFAMETHOXAZOLE\TRIMETHOPRIM
     Dosage: 1 G, 1X/DAY
     Route: 048
     Dates: start: 20120726
  9. DEPAKENE [Concomitant]
     Active Substance: VALPROIC ACID
     Dosage: 0.25 G, UNK
     Route: 048
  10. PREDNISOLONE. [Concomitant]
     Active Substance: PREDNISOLONE
     Dosage: UNK, 1X/DAY
     Dates: start: 20120726
  11. DEPAKENE [Concomitant]
     Active Substance: VALPROIC ACID
     Dosage: 800 MG, 2X/DAY
     Route: 048
  12. SEDEKOPAN CHOSEIDO [Concomitant]
     Dosage: 0.4 MG/KG, 2X/DAY
     Route: 048
  13. SENNOSIDE [Concomitant]
     Active Substance: SENNOSIDES
     Dosage: 12 (UNITS), AS NEEDED
     Route: 048

REACTIONS (1)
  - Pulmonary alveolar haemorrhage [Recovered/Resolved with Sequelae]

NARRATIVE: CASE EVENT DATE: 20120911
